FAERS Safety Report 9092320 (Version 1)
Quarter: 2013Q1

REPORT INFORMATION
  Report Type: Spontaneous
  Country: US (occurrence: US)
  Receive Date: 20130131
  Receipt Date: 20130131
  Transmission Date: 20140127
  Serious: No
  Sender: FDA-Public Use
  Company Number: US-ABBOTT-12P-163-1002269-00

PATIENT
  Age: 53 Year
  Sex: Female

DRUGS (15)
  1. HUMIRA [Suspect]
     Indication: RHEUMATOID ARTHRITIS
     Dosage: INITIAL DOSE
     Dates: start: 20121026
  2. HUMIRA [Suspect]
     Indication: PSORIASIS
  3. METHOTREXATE [Concomitant]
     Indication: RHEUMATOID ARTHRITIS
  4. PLAQUENIL [Concomitant]
     Indication: RHEUMATOID ARTHRITIS
     Dosage: DAILY
  5. CYMBALTA [Concomitant]
     Indication: PAIN MANAGEMENT
  6. DIOVAN [Concomitant]
     Indication: HYPERTENSION
     Dosage: DAILY
  7. MACRODANTIN [Concomitant]
     Indication: PROPHYLAXIS URINARY TRACT INFECTION
     Dosage: DAILY
  8. PROTONIX [Concomitant]
     Indication: GASTROOESOPHAGEAL REFLUX DISEASE
     Dosage: DAILY
  9. SIMCOR [Concomitant]
     Indication: BLOOD CHOLESTEROL INCREASED
     Dosage: DAILY
  10. SYNTHROID [Concomitant]
     Indication: HYPOTHYROIDISM
     Dosage: DAILY
  11. WELLBUTRIN [Concomitant]
     Indication: FATIGUE
     Dosage: DAILY
  12. WELLBUTRIN [Concomitant]
     Indication: DEPRESSION
  13. VICODIN [Concomitant]
     Indication: PAIN
     Dosage: 5/500
  14. METRONIDAZOLE [Concomitant]
     Indication: ROSACEA
     Dosage: APPLIED DAILY
     Route: 061
  15. TRIAMCINOLONE [Concomitant]
     Indication: PSORIASIS
     Route: 061

REACTIONS (2)
  - Incorrect dose administered [Unknown]
  - Injection site pain [Recovered/Resolved]
